FAERS Safety Report 24037041 (Version 2)
Quarter: 2024Q3

REPORT INFORMATION
  Report Type: Spontaneous
  Country: US (occurrence: US)
  Receive Date: 20240701
  Receipt Date: 20240709
  Transmission Date: 20241016
  Serious: No
  Sender: SANOFI AVENTIS
  Company Number: US-SA-SAC20240625000036

PATIENT
  Age: 21 Year
  Sex: Male

DRUGS (1)
  1. ALTUVIIIO [Suspect]
     Active Substance: EFANESOCTOCOG ALFA
     Indication: Haemorrhage
     Dosage: 4350 IU (+/-10%) EVERY 48 HOURS AS NEEDED (PRN)
     Route: 042

REACTIONS (4)
  - Fall [Unknown]
  - Limb injury [Unknown]
  - Contusion [Unknown]
  - Traumatic haemorrhage [Unknown]

NARRATIVE: CASE EVENT DATE: 20240618
